FAERS Safety Report 4933072-6 (Version None)
Quarter: 2006Q1

REPORT INFORMATION
  Report Type: 
  Country: None (occurrence: None)
  Receive Date: 20060302
  Receipt Date: 20060302
  Transmission Date: 20060701
  Serious: Yes (Death)
  Sender: FDA-Public Use
  Company Number: None

PATIENT
  Age: 76 Year
  Sex: Female

DRUGS (2)
  1. DIGOXIN [Suspect]
     Dosage: PO
     Route: 048
  2. FUROSEMIDE [Suspect]
     Dosage: PO
     Route: 048

REACTIONS (11)
  - ACUTE PRERENAL FAILURE [None]
  - ASTHENIA [None]
  - AUTOIMMUNE HEPATITIS [None]
  - BRADYCARDIA [None]
  - CHEST PAIN [None]
  - HYPOTENSION [None]
  - HYPOVOLAEMIA [None]
  - OEDEMA PERIPHERAL [None]
  - REFUSAL OF TREATMENT BY RELATIVE [None]
  - RENAL FAILURE ACUTE [None]
  - THERAPEUTIC AGENT TOXICITY [None]
